FAERS Safety Report 9975809 (Version 2)
Quarter: 2014Q1

REPORT INFORMATION
  Report Type: Spontaneous
  Country: CH (occurrence: CH)
  Receive Date: 20140306
  Receipt Date: 20140313
  Transmission Date: 20141002
  Serious: Yes (Death)
  Sender: FDA-Public Use
  Company Number: CH-ELI_LILLY_AND_COMPANY-CH201402008450

PATIENT
  Age: 77 Year
  Sex: Male
  Weight: 77 kg

DRUGS (4)
  1. EFIENT [Suspect]
     Indication: STENT PLACEMENT
     Dosage: 60 MG, SINGLE
     Dates: start: 20110211, end: 20110211
  2. EFIENT [Suspect]
     Dosage: 10 MG, QD
  3. ASPIRIN [Concomitant]
     Dosage: UNK
  4. ASPIRIN [Concomitant]
     Dosage: 100 MG, QD

REACTIONS (1)
  - Sudden death [Fatal]
